FAERS Safety Report 6169817-X (Version None)
Quarter: 2009Q2

REPORT INFORMATION
  Report Type: 
  Country: None (occurrence: None)
  Receive Date: 20090428
  Receipt Date: 20081007
  Transmission Date: 20091009
  Serious: No
  Sender: FDA-Public Use
  Company Number: US-AMGEN-US311901

PATIENT

DRUGS (2)
  1. SENSIPAR [Suspect]
     Indication: HYPERPARATHYROIDISM SECONDARY
     Route: 065
  2. ANTIHYPERTENSIVE MEDICATION NOS [Concomitant]
     Route: 065

REACTIONS (3)
  - PAIN IN EXTREMITY [None]
  - SKIN FISSURES [None]
  - SKIN HAEMORRHAGE [None]
